FAERS Safety Report 17006969 (Version 1)
Quarter: 2019Q4

REPORT INFORMATION
  Report Type: Spontaneous
  Country: US (occurrence: US)
  Receive Date: 20191106
  Receipt Date: 20191106
  Transmission Date: 20200122
  Serious: Yes (Disabling)
  Sender: FDA-Public Use
  Company Number: None

PATIENT
  Age: 4 Week
  Sex: Female
  Weight: 2.7 kg

DRUGS (2)
  1. RANITIDINE 75MG/5ML SYP SIL [Suspect]
     Active Substance: RANITIDINE
     Indication: GASTROOESOPHAGEAL REFLUX DISEASE
     Dosage: ?          QUANTITY:0.5 TEASPOON(S);?
     Route: 048
     Dates: start: 20190909, end: 20190930
  2. GAS DROPS [Concomitant]

REACTIONS (5)
  - Weight gain poor [None]
  - Weight decreased [None]
  - Tremor [None]
  - Pyrexia [None]
  - Diarrhoea [None]

NARRATIVE: CASE EVENT DATE: 20190909
